FAERS Safety Report 4557172-8 (Version None)
Quarter: 2005Q1

REPORT INFORMATION
  Report Type: 
  Country: None (occurrence: None)
  Receive Date: 20050120
  Receipt Date: 20050113
  Transmission Date: 20050727
  Serious: Yes (Other)
  Sender: FDA-Public Use
  Company Number: US-GLAXOSMITHKLINE-A0540657A

PATIENT
  Age: 78 Year
  Sex: Female
  Weight: 58.2 kg

DRUGS (11)
  1. AQUAFRESH EXTREME CLEAN TOOTHPASTE TUBE [Suspect]
     Indication: DENTAL CARE
     Dates: start: 20040101
  2. COUMADIN [Concomitant]
     Indication: COAGULOPATHY
     Route: 048
  3. MULTI-VITAMIN [Concomitant]
     Indication: HYPOVITAMINOSIS
     Route: 048
  4. BEXTRA [Concomitant]
     Indication: ARTHRITIS
     Route: 048
  5. ATENOLOL [Concomitant]
     Indication: HYPERTENSION
     Route: 048
  6. BIOTIN [Concomitant]
     Indication: ALOPECIA
     Route: 048
  7. CALTRATE 600 + D [Concomitant]
     Indication: MINERAL SUPPLEMENTATION
     Route: 048
  8. TRIAMTERENE AND HYDROCHLOROTHIAZIDE [Concomitant]
     Indication: HYPERTENSION
     Route: 048
  9. AMBIEN [Concomitant]
     Indication: INSOMNIA
     Route: 048
  10. CLONAZEPAM [Concomitant]
     Indication: RESTLESS LEGS SYNDROME
     Route: 048
  11. FOSAMAX [Concomitant]
     Indication: OSTEOPOROSIS
     Route: 048

REACTIONS (3)
  - BLEEDING TIME PROLONGED [None]
  - HAEMORRHAGIC DIATHESIS [None]
  - SKIN LACERATION [None]
